FAERS Safety Report 4938557-4 (Version None)
Quarter: 2006Q1

REPORT INFORMATION
  Report Type: 
  Country: None (occurrence: None)
  Receive Date: 20060306
  Receipt Date: 20060217
  Transmission Date: 20060701
  Serious: Yes (Other)
  Sender: FDA-Public Use
  Company Number: US200602004357

PATIENT
  Age: 64 Year
  Sex: Male

DRUGS (5)
  1. CYMBALTA [Suspect]
     Dosage: 30 MG
  2. DEPAKOTE [Concomitant]
  3. CLONOPIN (CLONAZEPAM) [Concomitant]
  4. SEROQUEL      /UNK/(QUETIAPINE FUMARATE) [Concomitant]
  5. ALLOPURINOL [Concomitant]

REACTIONS (2)
  - RASH GENERALISED [None]
  - SKIN EXFOLIATION [None]
